FAERS Safety Report 4364750-8 (Version None)
Quarter: 2004Q2

REPORT INFORMATION
  Report Type: 
  Country: None (occurrence: None)
  Receive Date: 20040526
  Receipt Date: 20040518
  Transmission Date: 20050107
  Serious: Yes (Other)
  Sender: FDA-Public Use
  Company Number: PHEH2004US05489

PATIENT
  Age: 54 Year
  Sex: Female

DRUGS (2)
  1. ELIDEL [Suspect]
     Indication: PSORIASIS
     Dosage: UNK, UNK
     Dates: start: 20040512
  2. ELIDEL [Suspect]
     Dosage: UNK, BID
     Route: 061
     Dates: start: 20040512, end: 20040513

REACTIONS (7)
  - ERYTHEMA [None]
  - HEADACHE [None]
  - OROPHARYNGEAL SWELLING [None]
  - PRURITUS [None]
  - SWELLING FACE [None]
  - THROAT TIGHTNESS [None]
  - VOMITING [None]
